FAERS Safety Report 7220672-6 (Version None)
Quarter: 2011Q1

REPORT INFORMATION
  Report Type: 
  Country: None (occurrence: None)
  Receive Date: 20110111
  Receipt Date: 20110105
  Transmission Date: 20110831
  Serious: Yes (Other)
  Sender: FDA-Public Use
  Company Number: DE-ELI_LILLY_AND_COMPANY-DE201010002984

PATIENT
  Sex: Female

DRUGS (7)
  1. ASPIRIN [Concomitant]
     Dosage: 100 D/F, UNK
     Dates: start: 19900101
  2. BISOLICH [Concomitant]
  3. BYETTA [Suspect]
     Dosage: 10 UG, 2/D
     Route: 058
     Dates: start: 20101001, end: 20101230
  4. L-THYROX [Concomitant]
  5. BYETTA [Suspect]
     Dosage: 5 UG, UNK
     Dates: start: 20100901, end: 20101001
  6. TILIDIN [Concomitant]
  7. CARDIAC THERAPY [Concomitant]

REACTIONS (5)
  - NAUSEA [None]
  - SYNCOPE [None]
  - WEIGHT DECREASED [None]
  - VOMITING [None]
  - CONSTIPATION [None]
